FAERS Safety Report 21058951 (Version 6)
Quarter: 2023Q1

REPORT INFORMATION
  Report Type: Report from Study
  Country: US (occurrence: US)
  Receive Date: 20220708
  Receipt Date: 20230204
  Transmission Date: 20230418
  Serious: Yes (Hospitalization, Other)
  Sender: FDA-Public Use
  Company Number: US-ABBVIE-22P-163-4451938-00

PATIENT
  Age: 59 Year
  Sex: Female

DRUGS (3)
  1. VENETOCLAX [Suspect]
     Active Substance: VENETOCLAX
     Indication: Acute myeloid leukaemia
     Dosage: LAST DOSE WAS ON 12 MAY 2022; D1-28 OF EACH CYCLE.
     Route: 048
     Dates: start: 20220421
  2. CEDAZURIDINE\DECITABINE [Concomitant]
     Active Substance: CEDAZURIDINE\DECITABINE
     Indication: Acute myeloid leukaemia
     Dosage: LAST ADMINISTRATION DATE 25 APR 2022. D1-5 OF EACH CYCLE.
     Route: 048
     Dates: start: 20220421
  3. ALLOPURINOL [Concomitant]
     Active Substance: ALLOPURINOL
     Indication: Product used for unknown indication

REACTIONS (8)
  - Bacteraemia [Recovered/Resolved]
  - Hypotension [Recovered/Resolved]
  - Appendicitis [Recovered/Resolved]
  - Febrile neutropenia [Recovered/Resolved]
  - White blood cell count decreased [Recovered/Resolved]
  - Enterobacter sepsis [Recovered/Resolved]
  - Failure to thrive [Recovered/Resolved]
  - Lethargy [Recovered/Resolved]

NARRATIVE: CASE EVENT DATE: 20220512
